FAERS Safety Report 8032417-0 (Version None)
Quarter: 2012Q1

REPORT INFORMATION
  Report Type: 
  Country: None (occurrence: None)
  Receive Date: 20120109
  Receipt Date: 20120109
  Transmission Date: 20120608
  Serious: Yes (Other)
  Sender: FDA-Public Use
  Company Number: None

PATIENT
  Age: 70 Year
  Sex: Male

DRUGS (12)
  1. PROZAC [Concomitant]
  2. FINASTERIDE [Concomitant]
  3. HYTRIN [Concomitant]
  4. NOVOLIN 70/30 [Concomitant]
  5. REVLIMID [Suspect]
     Indication: NON-HODGKIN'S LYMPHOMA
     Dosage: 15MG QDX21/28D ORALLY
     Route: 048
  6. OXCARBAZEPINE [Concomitant]
  7. PREDNISONE TAB [Concomitant]
  8. METFORMIN HCL [Concomitant]
  9. REVLIMID [Concomitant]
  10. ALENDRONATE SODIUM [Concomitant]
  11. ZOVIRAX [Concomitant]
  12. NABUMETONE [Concomitant]

REACTIONS (1)
  - THERAPEUTIC RESPONSE DECREASED [None]
